FAERS Safety Report 5350407-3 (Version None)
Quarter: 2007Q2

REPORT INFORMATION
  Report Type: 
  Country: None (occurrence: None)
  Receive Date: 20070605
  Receipt Date: 20070605
  Transmission Date: 20071010
  Serious: Yes (Hospitalization)
  Sender: FDA-Public Use
  Company Number: None

PATIENT
  Age: 62 Year
  Sex: Male
  Weight: 94.8018 kg

DRUGS (5)
  1. HYDROCHLOROTHIAZIDE [Suspect]
     Indication: HYPERTENSION
     Dosage: 25 MG QDAY PO
     Route: 048
     Dates: start: 20040203, end: 20060701
  2. ATENOLOL [Concomitant]
  3. DILTIAZEM [Concomitant]
  4. PRECISION XTRA -GLUCOSE- TEST STRIP [Concomitant]
  5. NON-VA ASPIRIN [Concomitant]

REACTIONS (2)
  - ADVERSE DRUG REACTION [None]
  - PANCREATITIS [None]
